FAERS Safety Report 4665564-1 (Version None)
Quarter: 2005Q2

REPORT INFORMATION
  Report Type: 
  Country: None (occurrence: None)
  Receive Date: 20050519
  Receipt Date: 20040831
  Transmission Date: 20051028
  Serious: No
  Sender: FDA-Public Use
  Company Number: US-BRISTOL-MYERS SQUIBB COMPANY-12707667

PATIENT
  Age: 65 Year
  Sex: Male

DRUGS (3)
  1. FOSINOPRIL SODIUM [Suspect]
     Indication: HYPERTENSION
     Dates: start: 20040815
  2. NORVASC [Concomitant]
     Indication: HYPERTENSION
  3. ALLOPURINOL [Concomitant]
     Indication: GOUT

REACTIONS (1)
  - RASH PRURITIC [None]
